FAERS Safety Report 7351771-6 (Version None)
Quarter: 2011Q1

REPORT INFORMATION
  Report Type: 
  Country: None (occurrence: None)
  Receive Date: 20110315
  Receipt Date: 20100908
  Transmission Date: 20110831
  Serious: Yes (Hospitalization, Other)
  Sender: FDA-Public Use
  Company Number: US-BAYER-201021006NA

PATIENT
  Sex: Female
  Weight: 127.44 kg

DRUGS (37)
  1. AZITHROMYCIN [Concomitant]
     Dosage: UNK
     Dates: start: 20070101
  2. HYDROCODONE BITARTRATE AND ACETAMINOPHEN [Concomitant]
     Dosage: UNK
     Dates: start: 20070101
  3. SKELAXIN [Concomitant]
     Dosage: UNK
     Dates: start: 20070101
  4. PROMETHAZINE [Concomitant]
     Dosage: 25 MG, PRN
     Dates: start: 20080401
  5. FUROSEMIDE [Concomitant]
     Dosage: UNK
     Dates: start: 20060101
  6. PROVERA [Concomitant]
     Indication: AMENORRHOEA
  7. YAZ [Suspect]
     Indication: ORAL CONTRACEPTION
  8. ATENOLOL [Concomitant]
     Indication: HYPERTENSION
     Dosage: 75 MG, CONT
     Route: 048
     Dates: start: 19990101, end: 20100101
  9. IBUPROFEN [Concomitant]
     Indication: FALL
     Dosage: UNK
     Dates: start: 20070101
  10. YAZ [Suspect]
     Indication: POLYCYSTIC OVARIES
     Dosage: UNK
     Dates: start: 20080312, end: 20080414
  11. ATENOLOL [Concomitant]
     Indication: RENAL DISORDER
  12. HYOSCYAMINE [Concomitant]
     Dosage: UNK
     Dates: start: 20060101
  13. CARAFATE [Concomitant]
     Dosage: UNK
     Dates: start: 20070101
  14. NSAID'S [Concomitant]
  15. TRAMADOL [Concomitant]
  16. LYRICA [Concomitant]
     Dosage: UNK
     Dates: start: 20070101
  17. PROMETHAZINE [Concomitant]
     Dosage: 12.5 MG, PRN
     Dates: start: 20080401
  18. HYOSCYAMINE [Concomitant]
     Dosage: 0.125 MG, MT
     Dates: start: 20080401
  19. FLUCONAZOLE [Concomitant]
     Dosage: UNK
     Dates: start: 20070101
  20. TENORMIN [Concomitant]
  21. JANUMET [Concomitant]
     Indication: DIABETES MELLITUS
  22. LOESTRIN 1.5/30 [Concomitant]
     Dosage: UNK
     Dates: start: 20080303
  23. JANUMET [Concomitant]
     Indication: INSULIN RESISTANCE
     Dosage: UNK UNK, CONT
     Route: 048
     Dates: start: 20060101
  24. METHOCARBAMOL [Concomitant]
     Dosage: UNK
     Dates: start: 20070101
  25. METRONIDAZOLE [Concomitant]
     Dosage: 500 MG, BID
     Dates: start: 20080401
  26. TUSSIONEX [BROMHEXINE HYDROCHLORIDE,ZIPEPROL] [Concomitant]
     Dosage: UNK
     Dates: start: 20060101
  27. MIDRIN [Concomitant]
     Indication: MIGRAINE
     Dosage: UNK UNK, CONT
     Route: 048
  28. RAMIPRIL [Concomitant]
     Dosage: UNK
     Dates: start: 20080101
  29. POTASSIUM [POTASSIUM] [Concomitant]
     Indication: HYPOKALAEMIA
     Dosage: UNK
     Dates: start: 20040101
  30. TRI-LUMA [Concomitant]
     Dosage: UNK UNK, HS
     Route: 061
     Dates: start: 20080401
  31. ALTACE [Concomitant]
     Indication: HYPERTENSION
     Dosage: 10 MG, UNK
     Dates: start: 19990101, end: 20100101
  32. GABAPENTIN [Concomitant]
     Dosage: UNK
     Dates: start: 20070101
  33. PROPRANOLOL [Concomitant]
     Dosage: UNK
     Dates: start: 20070101
  34. PROMETHAZINE [Concomitant]
     Dosage: UNK
     Dates: start: 20070101
  35. TOBRADEX [Concomitant]
     Dosage: UNK
     Dates: start: 20070101
  36. ASCENCYL [Concomitant]
     Dosage: UNK
     Dates: start: 20070101
  37. LOVASTATIN [Concomitant]
     Indication: BLOOD CHOLESTEROL INCREASED

REACTIONS (4)
  - MUSCLE SPASMS [None]
  - DEEP VEIN THROMBOSIS [None]
  - PAIN [None]
  - PAIN IN EXTREMITY [None]
